FAERS Safety Report 6994370-8 (Version None)
Quarter: 2010Q3

REPORT INFORMATION
  Report Type: 
  Country: None (occurrence: None)
  Receive Date: 20100917
  Receipt Date: 20100908
  Transmission Date: 20110219
  Serious: Yes (Other)
  Sender: FDA-Public Use
  Company Number: US-AMGEN-QUU436924

PATIENT
  Sex: Male

DRUGS (3)
  1. ARANESP [Suspect]
     Indication: RENAL FAILURE CHRONIC
     Dates: end: 20100601
  2. CELLCEPT [Concomitant]
     Dates: start: 20100601
  3. TACROLIMUS [Concomitant]
     Dates: start: 20100601

REACTIONS (3)
  - BIOPSY BONE MARROW ABNORMAL [None]
  - HAEMOGLOBIN DECREASED [None]
  - THERAPEUTIC RESPONSE DECREASED [None]
